FAERS Safety Report 6516749-0 (Version None)
Quarter: 2009Q4

REPORT INFORMATION
  Report Type: 
  Country: None (occurrence: None)
  Receive Date: 20091223
  Receipt Date: 20091214
  Transmission Date: 20100525
  Serious: Yes (Hospitalization, Other)
  Sender: FDA-Public Use
  Company Number: FR-JNJFOC-20091206283

PATIENT
  Sex: Female

DRUGS (16)
  1. IXPRIM [Suspect]
     Indication: DRUG USE FOR UNKNOWN INDICATION
     Route: 048
  2. DEPAKOTE [Suspect]
     Indication: DRUG USE FOR UNKNOWN INDICATION
     Route: 048
  3. MODOPAR [Suspect]
     Indication: DRUG USE FOR UNKNOWN INDICATION
     Route: 048
  4. TRIVASTAL [Suspect]
     Indication: DRUG USE FOR UNKNOWN INDICATION
     Route: 048
  5. ANAFRANIL [Suspect]
     Indication: DRUG USE FOR UNKNOWN INDICATION
     Route: 048
  6. DEROXAT [Suspect]
     Indication: DRUG USE FOR UNKNOWN INDICATION
     Route: 048
  7. DITROPAN [Suspect]
     Indication: DRUG USE FOR UNKNOWN INDICATION
     Route: 048
  8. KARDEGIC [Concomitant]
  9. FOSAMAX [Concomitant]
  10. NEXIUM [Concomitant]
  11. FLUTICASONE PROPIONATE W/SALMETEROL [Concomitant]
  12. TRANXENE [Concomitant]
  13. TRIATEC [Concomitant]
  14. TRANSIPEG [Concomitant]
  15. TARDYFERON [Concomitant]
  16. CALCIUM CARBONATE W/COLECALCIFEROL [Concomitant]

REACTIONS (4)
  - CONFUSIONAL STATE [None]
  - EXTRAPYRAMIDAL DISORDER [None]
  - RENAL FAILURE [None]
  - URINARY TRACT INFECTION [None]
